FAERS Safety Report 6297094-8 (Version None)
Quarter: 2009Q3

REPORT INFORMATION
  Report Type: 
  Country: None (occurrence: None)
  Receive Date: 20090724
  Receipt Date: 20090326
  Transmission Date: 20100115
  Serious: Yes (Hospitalization)
  Sender: FDA-Public Use
  Company Number: 2009BI004787

PATIENT
  Age: 35 Year
  Sex: Female

DRUGS (1)
  1. TYSABRI [Suspect]
     Indication: CROHN'S DISEASE
     Dosage: ;IV
     Route: 042
     Dates: start: 20081204

REACTIONS (3)
  - AMNESIA [None]
  - HEADACHE [None]
  - NERVOUS SYSTEM DISORDER [None]
